FAERS Safety Report 5043115-X (Version None)
Quarter: 2006Q2

REPORT INFORMATION
  Report Type: 
  Country: None (occurrence: None)
  Receive Date: 20060628
  Receipt Date: 20060623
  Transmission Date: 20061013
  Serious: Yes (Hospitalization)
  Sender: FDA-Public Use
  Company Number: 200612609GDS

PATIENT
  Age: 67 Year
  Sex: Female

DRUGS (12)
  1. ASPIRIN [Suspect]
     Indication: HEADACHE
     Dosage: PRN, ORAL
     Route: 048
     Dates: end: 20060407
  2. PARACETAMOL [Suspect]
     Indication: HEADACHE
     Dosage: PRN, ORAL
     Route: 048
     Dates: end: 20060407
  3. PARACETAMOL/DEXTROMETHORPHAN (DEXTROMETHORPHAN W/PARACETAMOL/PSEUDOEPH [Suspect]
     Indication: HEADACHE
     Dosage: PRN, ORAL
     Route: 048
     Dates: end: 20060407
  4. HERCEPTIN [Suspect]
     Indication: BREAST CANCER
     Dosage: 200 MG, TOTAL DAILY, INTRAVENOUS
     Route: 042
     Dates: start: 20050803, end: 20060405
  5. COMILORID (AMILORID, HYDROCHLOROTHIAZIDE) [Suspect]
     Indication: HYPERTENSION
     Dosage: ORAL
     Route: 048
     Dates: start: 20051201, end: 20060407
  6. ANASTROZOLE [Concomitant]
  7. TROPISETRON [Concomitant]
  8. DEXAMETHASONE TAB [Concomitant]
  9. METOCLOPRAMIDE [Concomitant]
  10. CARVEDILOL [Concomitant]
  11. COLECALCIFEROL [Concomitant]
  12. RISEDRONIC ACID [Concomitant]

REACTIONS (3)
  - ALANINE AMINOTRANSFERASE INCREASED [None]
  - CONDITION AGGRAVATED [None]
  - RENAL IMPAIRMENT [None]
